FAERS Safety Report 4550185-1 (Version None)
Quarter: 2005Q1

REPORT INFORMATION
  Report Type: 
  Country: None (occurrence: None)
  Receive Date: 20050112
  Receipt Date: 20050101
  Transmission Date: 20050727
  Serious: Yes (Other)
  Sender: FDA-Public Use
  Company Number: IE-ABBOTT-05P-229-0285846-00

PATIENT
  Age: 7 Year
  Sex: Female

DRUGS (5)
  1. KLACID PEDIATRIC SUSPENSION [Suspect]
     Indication: DRUG USE FOR UNKNOWN INDICATION
     Dosage: 125 MG/5ML
     Route: 048
     Dates: start: 20041222
  2. AMOXICILLIN AND CLAVULANATE POTASSIUM [Suspect]
     Indication: PNEUMONIA
     Dates: start: 20041215, end: 20041221
  3. AMOXICILLIN AND CLAVULANATE POTASSIUM [Suspect]
     Route: 042
     Dates: start: 20041213, end: 20041215
  4. STEROIDS [Concomitant]
     Indication: PNEUMONIA
     Dates: start: 20041213, end: 20041215
  5. INHALER [Concomitant]
     Indication: PNEUMONIA
     Dates: start: 20041213

REACTIONS (3)
  - PRURITUS [None]
  - PYREXIA [None]
  - RASH [None]
